FAERS Safety Report 20725595 (Version 2)
Quarter: 2025Q3

REPORT INFORMATION
  Report Type: Spontaneous
  Country: US (occurrence: US)
  Receive Date: 20220419
  Receipt Date: 20250710
  Transmission Date: 20251020
  Serious: Yes (Hospitalization)
  Sender: BIOMARIN
  Company Number: US-SA-SAC20220413001024

PATIENT
  Age: 17 Year
  Sex: Female

DRUGS (2)
  1. LARONIDASE [Suspect]
     Active Substance: LARONIDASE
     Indication: Mucopolysaccharidosis I
     Dosage: 20.3 MG, QW
     Dates: start: 20071120
  2. LARONIDASE [Suspect]
     Active Substance: LARONIDASE

REACTIONS (7)
  - International normalised ratio abnormal [Recovering/Resolving]
  - Anaemia [Recovering/Resolving]
  - Blood viscosity decreased [Recovering/Resolving]
  - Sleep deficit [Recovering/Resolving]
  - Anxiety [Recovering/Resolving]
  - Catatonia [Recovering/Resolving]
  - Irritability [Recovering/Resolving]

NARRATIVE: CASE EVENT DATE: 20220404
